FAERS Safety Report 7501838-4 (Version None)
Quarter: 2011Q2

REPORT INFORMATION
  Report Type: 
  Country: None (occurrence: None)
  Receive Date: 20110525
  Receipt Date: 20110504
  Transmission Date: 20111010
  Serious: Yes (Other)
  Sender: FDA-Public Use
  Company Number: US-BAYER-201028818NA

PATIENT
  Sex: Female
  Weight: 68.027 kg

DRUGS (2)
  1. YAZ [Suspect]
     Indication: PRODUCT USED FOR UNKNOWN INDICATION
     Dosage: UNK
     Route: 048
     Dates: start: 20050528, end: 20050802
  2. YASMIN [Suspect]
     Indication: PRODUCT USED FOR UNKNOWN INDICATION
     Route: 048
     Dates: start: 20050501, end: 20050801

REACTIONS (7)
  - CEREBROVASCULAR ACCIDENT [None]
  - PARAESTHESIA [None]
  - PHOTOPSIA [None]
  - VISUAL IMPAIRMENT [None]
  - ASTHENIA [None]
  - MIGRAINE [None]
  - VISION BLURRED [None]
